FAERS Safety Report 4934870-5 (Version None)
Quarter: 2006Q1

REPORT INFORMATION
  Report Type: 
  Country: None (occurrence: None)
  Receive Date: 20060302
  Receipt Date: 20060214
  Transmission Date: 20060701
  Serious: Yes (Death, Hospitalization)
  Sender: FDA-Public Use
  Company Number: IT200602003146

PATIENT
  Age: 63 Year
  Sex: Female
  Weight: 54 kg

DRUGS (7)
  1. ALIMTA [Suspect]
     Indication: PLEURAL MESOTHELIOMA
     Dosage: SEE IMAGE
     Route: 042
     Dates: start: 20050729, end: 20050919
  2. ALIMTA [Suspect]
     Indication: PLEURAL MESOTHELIOMA
     Dosage: SEE IMAGE
     Route: 042
     Dates: start: 20051122, end: 20051122
  3. ALIMTA [Suspect]
     Indication: PLEURAL MESOTHELIOMA
     Dosage: SEE IMAGE
     Route: 042
     Dates: start: 20051220, end: 20051220
  4. CISPLATIN [Concomitant]
  5. DELTACORTENE /ITA/ (PREDNISONE) [Concomitant]
  6. ONDANSETRON [Concomitant]
  7. LEUCOVORIN CALCIUM [Concomitant]

REACTIONS (9)
  - BLOOD SODIUM DECREASED [None]
  - DEHYDRATION [None]
  - GASTROINTESTINAL TOXICITY [None]
  - GENERAL PHYSICAL HEALTH DETERIORATION [None]
  - HAEMORRHAGE INTRACRANIAL [None]
  - MUCOSAL INFLAMMATION [None]
  - NEUTROPHIL COUNT DECREASED [None]
  - PANCYTOPENIA [None]
  - RENAL FAILURE [None]
